FAERS Safety Report 8297619-7 (Version None)
Quarter: 2012Q2

REPORT INFORMATION
  Report Type: 
  Country: None (occurrence: None)
  Receive Date: 20120419
  Receipt Date: 20120413
  Transmission Date: 20120825
  Serious: Yes (Other)
  Sender: FDA-Public Use
  Company Number: US-AMGEN-USASP2011012853

PATIENT
  Age: 75 Year
  Sex: Male
  Weight: 124.72 kg

DRUGS (2)
  1. ENBREL [Suspect]
     Indication: PSORIASIS
     Dosage: 50 MG, 2 TIMES/WK
     Route: 058
     Dates: start: 20071101
  2. ENBREL [Suspect]
     Dosage: 50 MG, QWK
     Dates: start: 20090101, end: 20110222

REACTIONS (7)
  - DYSPNOEA [None]
  - SLEEP DISORDER [None]
  - DRUG WITHDRAWAL SYNDROME [None]
  - PERSONALITY CHANGE [None]
  - MOOD ALTERED [None]
  - APATHY [None]
  - PRURITUS [None]
